FAERS Safety Report 21310681 (Version 1)
Quarter: 2022Q3

REPORT INFORMATION
  Report Type: Spontaneous
  Country: FR (occurrence: FR)
  Receive Date: 20220909
  Receipt Date: 20220909
  Transmission Date: 20221027
  Serious: Yes (Other)
  Sender: FDA-Public Use
  Company Number: None

PATIENT
  Age: 84 Year
  Sex: Male
  Weight: 50 kg

DRUGS (5)
  1. ONDANSETRON [Suspect]
     Active Substance: ONDANSETRON
     Indication: Chemotherapy side effect prophylaxis
     Dosage: UNIT DOSE : 8 MG  , FREQUENCY TIME :  1 CYCLICAL  , DURATION : 1 DAY
     Dates: start: 20220511, end: 20220511
  2. METHYLPREDNISOLONE HEMISUCCINATE [Suspect]
     Active Substance: METHYLPREDNISOLONE HEMISUCCINATE
     Indication: Chemotherapy side effect prophylaxis
     Dosage: HEMISUCCINATE DE METHYLPREDNISOLONE , UNIT DOSE :120 MG   , FREQUENCY TIME : 1 CYCLICAL   , DURATION
     Dates: start: 20220511, end: 20220511
  3. CARBOPLATIN [Suspect]
     Active Substance: CARBOPLATIN
     Indication: Squamous cell carcinoma of skin
     Dosage: UNIT DOSE : 150 MG  , FREQUENCY TIME : 1 CYCLICAL   , DURATION :  1 DAY
     Dates: start: 20220511, end: 20220511
  4. DEXCHLORPHENIRAMINE MALEATE [Suspect]
     Active Substance: DEXCHLORPHENIRAMINE MALEATE
     Indication: Chemotherapy side effect prophylaxis
     Dosage: MALEATE DE DEXCHLORPHENIRAMINE , UNIT DOSE :5 MG   , FREQUENCY TIME : 1 CYCLICAL    , DURATION : 1 D
     Dates: start: 20220511, end: 20220511
  5. ERBITUX [Suspect]
     Active Substance: CETUXIMAB
     Indication: Squamous cell carcinoma of skin
     Dosage: FORM STRENGTH : 5 MG/ML, UNIT DOSE : 590 MG  , FREQUENCY TIME :  1  CYCLICAL  , DURATION : 1 DAY
     Dates: start: 20220511, end: 20220511

REACTIONS (1)
  - Epilepsy [Recovered/Resolved]

NARRATIVE: CASE EVENT DATE: 20220512
